FAERS Safety Report 11326188 (Version 1)
Quarter: 2015Q3

REPORT INFORMATION
  Report Type: Spontaneous
  Country: US (occurrence: None)
  Receive Date: 20150729
  Receipt Date: 20150729
  Transmission Date: 20151125
  Serious: Yes (Other)
  Sender: FDA-Public Use
  Company Number: ADR-2013-02059

PATIENT
  Age: 68 Year
  Sex: Male

DRUGS (2)
  1. BACLOFEN INTRATHECAL [Suspect]
     Active Substance: BACLOFEN
     Indication: MUSCLE SPASTICITY
  2. MORPHINE 15 MG [Suspect]
     Active Substance: MORPHINE

REACTIONS (4)
  - Dyspnoea [None]
  - Medical device site irritation [None]
  - Medical device discomfort [None]
  - Back pain [None]
